FAERS Safety Report 24209603 (Version 2)
Quarter: 2024Q3

REPORT INFORMATION
  Report Type: Report from Study
  Country: GT (occurrence: GT)
  Receive Date: 20240814
  Receipt Date: 20240826
  Transmission Date: 20241016
  Serious: Yes (Death, Other)
  Sender: NOVARTIS
  Company Number: GT-002147023-NVSC2024GT052507

PATIENT
  Age: 45 Year
  Sex: Female
  Weight: 54.422 kg

DRUGS (3)
  1. KISQALI [Suspect]
     Active Substance: RIBOCICLIB
     Indication: Breast cancer
     Dosage: 600 MG, QD
     Route: 048
     Dates: start: 202308
  2. KISQALI [Suspect]
     Active Substance: RIBOCICLIB
     Dosage: 600 MG, QD
     Route: 048
     Dates: start: 20230922
  3. FASLODEX [Concomitant]
     Active Substance: FULVESTRANT
     Indication: Product used for unknown indication
     Dosage: 2 UNITS (EVERY 28 DAYS)
     Route: 065

REACTIONS (14)
  - Breast cancer [Fatal]
  - Malignant neoplasm progression [Fatal]
  - Blood bilirubin increased [Unknown]
  - Transaminases increased [Unknown]
  - Yellow skin [Unknown]
  - Pruritus [Unknown]
  - Urticaria [Unknown]
  - Pain of skin [Unknown]
  - Hypersensitivity [Not Recovered/Not Resolved]
  - Rash [Not Recovered/Not Resolved]
  - Discomfort [Unknown]
  - Pain in extremity [Unknown]
  - Liver function test increased [Unknown]
  - Laboratory test abnormal [Unknown]

NARRATIVE: CASE EVENT DATE: 20231201
